FAERS Safety Report 17100180 (Version 1)
Quarter: 2019Q4

REPORT INFORMATION
  Report Type: Spontaneous
  Country: US (occurrence: US)
  Receive Date: 20191202
  Receipt Date: 20191202
  Transmission Date: 20200122
  Serious: Yes (Hospitalization, Other)
  Sender: FDA-Public Use
  Company Number: US-ASTRAZENECA-2019SF70567

PATIENT
  Sex: Male
  Weight: 11.1 kg

DRUGS (5)
  1. DIAZEPAM. [Concomitant]
     Active Substance: DIAZEPAM
     Dosage: 100 PERCENT POWDER
  2. PULMOZYME [Concomitant]
     Active Substance: DORNASE ALFA
  3. LEVETIRACETAM. [Concomitant]
     Active Substance: LEVETIRACETAM
  4. ALBUTEROL SULFATE. [Concomitant]
     Active Substance: ALBUTEROL SULFATE
  5. SYNAGIS [Suspect]
     Active Substance: PALIVIZUMAB
     Indication: ANTIVIRAL PROPHYLAXIS
     Route: 030
     Dates: start: 20191120

REACTIONS (3)
  - Brain injury [Unknown]
  - Heart rate decreased [Unknown]
  - Body temperature decreased [Unknown]
